FAERS Safety Report 14741773 (Version 1)
Quarter: 2018Q2

REPORT INFORMATION
  Report Type: Spontaneous
  Country: GB (occurrence: GB)
  Receive Date: 20180410
  Receipt Date: 20180410
  Transmission Date: 20180711
  Serious: Yes (Other)
  Sender: FDA-Public Use
  Company Number: GB-TEVA-2018-GB-880537

PATIENT
  Age: 35 Year
  Sex: Female

DRUGS (8)
  1. EVOREL CONTI [Concomitant]
     Route: 065
     Dates: start: 20171103
  2. FEXOFENADINE [Concomitant]
     Active Substance: FEXOFENADINE\FEXOFENADINE HYDROCHLORIDE
     Dosage: 120 MILLIGRAM DAILY;
     Route: 065
     Dates: start: 20170919
  3. LANSOPRAZOLE. [Concomitant]
     Active Substance: LANSOPRAZOLE
     Dosage: 30 MILLIGRAM DAILY;
     Dates: start: 20170328
  4. FEMSEVEN CONTI [Concomitant]
     Active Substance: ESTRADIOL HEMIHYDRATE\LEVONORGESTREL
     Route: 065
     Dates: start: 20171101, end: 20171103
  5. FLIXONASE AQUEOUS [Concomitant]
     Dosage: 1 DOSAGE FORMS DAILY; INTO EACH NOSTRIL. 50 MICROGRAMS/DOSE
     Route: 045
     Dates: start: 20170919
  6. FEMSEVEN CONTI [Suspect]
     Active Substance: ESTRADIOL HEMIHYDRATE\LEVONORGESTREL
     Indication: AMENORRHOEA
     Route: 065
     Dates: start: 20171101, end: 20171103
  7. ACIDEX [Concomitant]
     Active Substance: CALCIUM CARBONATE\SODIUM ALGINATE\SODIUM BICARBONATE
     Dosage: .
     Route: 065
     Dates: start: 20170328
  8. CITALOPRAM [Concomitant]
     Active Substance: CITALOPRAM HYDROBROMIDE
     Dosage: 10 MILLIGRAM DAILY;
     Route: 065
     Dates: start: 20170905

REACTIONS (1)
  - Urticaria [Recovered/Resolved]

NARRATIVE: CASE EVENT DATE: 20171101
